FAERS Safety Report 25223016 (Version 1)
Quarter: 2025Q2

REPORT INFORMATION
  Report Type: Spontaneous
  Country: US (occurrence: US)
  Receive Date: 20250422
  Receipt Date: 20250422
  Transmission Date: 20250716
  Serious: No
  Sender: GLAXOSMITHKLINE
  Company Number: US-GSK-US2025AMR039199

PATIENT
  Sex: Male

DRUGS (1)
  1. FLUTICASONE PROPIONATE [Suspect]
     Active Substance: FLUTICASONE PROPIONATE
     Indication: Asthma
     Dosage: 2 PUFF(S), QD (44 MCG/MG 10.6G/120)
     Route: 055

REACTIONS (3)
  - Wrong technique in device usage process [Unknown]
  - Product dose omission issue [Unknown]
  - Off label use [Unknown]
